FAERS Safety Report 7328805-8 (Version None)
Quarter: 2011Q1

REPORT INFORMATION
  Report Type: 
  Country: None (occurrence: None)
  Receive Date: 20110225
  Receipt Date: 20110225
  Transmission Date: 20110831
  Serious: No
  Sender: FDA-Public Use
  Company Number: None

PATIENT
  Age: 34 Year
  Sex: Female
  Weight: 68.0396 kg

DRUGS (2)
  1. LOESTRIN 24 FE [Suspect]
     Indication: CONTRACEPTION
     Dosage: 1 PILL -1 MG- DAILY PO
     Route: 048
     Dates: start: 20100326, end: 20110221
  2. NORETHINDRONE [Suspect]

REACTIONS (1)
  - MIGRAINE [None]
